FAERS Safety Report 23524136 (Version 4)
Quarter: 2024Q2

REPORT INFORMATION
  Report Type: Spontaneous
  Country: CA (occurrence: CA)
  Receive Date: 20240214
  Receipt Date: 20240610
  Transmission Date: 20240715
  Serious: Yes (Other)
  Sender: FDA-Public Use
  Company Number: CA-SA-2024SA042597

PATIENT

DRUGS (11)
  1. LARONIDASE [Suspect]
     Active Substance: LARONIDASE
     Indication: Mucopolysaccharidosis I
     Dosage: 23.2 MG, QW
     Route: 041
     Dates: start: 20110603
  2. LARONIDASE [Suspect]
     Active Substance: LARONIDASE
     Dosage: 23.2 MG, QW
     Route: 041
     Dates: start: 20170827
  3. LARONIDASE [Suspect]
     Active Substance: LARONIDASE
     Dosage: 23.2 MG, QW
     Route: 041
     Dates: start: 20240317
  4. AZITHROMYCIN [Concomitant]
     Active Substance: AZITHROMYCIN
     Indication: Product used for unknown indication
     Dosage: UNK
  5. MOXIFLOXACIN HYDROCHLORIDE [Concomitant]
     Active Substance: MOXIFLOXACIN HYDROCHLORIDE\MOXIFLOXACIN HYDROCHLORIDE MONOHYDRATE
     Indication: Product used for unknown indication
     Dosage: 400 MG FRO 7 DAYS
  6. CETIRIZINE HYDROCHLORIDE [Concomitant]
     Active Substance: CETIRIZINE HYDROCHLORIDE
     Indication: Premedication
     Dosage: 10 MG, BID
  7. CETIRIZINE HYDROCHLORIDE [Concomitant]
     Active Substance: CETIRIZINE HYDROCHLORIDE
     Dosage: 10 MG, BID
  8. PREDNISONE [Concomitant]
     Active Substance: PREDNISONE
     Indication: Product used for unknown indication
     Dosage: UNK
  9. FLOVENT [Concomitant]
     Active Substance: FLUTICASONE PROPIONATE
     Indication: Product used for unknown indication
     Dosage: UNK
  10. ALBUTEROL [Concomitant]
     Active Substance: ALBUTEROL
     Indication: Product used for unknown indication
     Dosage: UNK
  11. TYLENOL [Concomitant]
     Active Substance: ACETAMINOPHEN
     Indication: Premedication
     Dosage: 15 MG

REACTIONS (8)
  - Spinal cord compression [Unknown]
  - Cyst removal [Unknown]
  - Wisdom teeth removal [Unknown]
  - Central venous catheterisation [Unknown]
  - Corneal transplant [Unknown]
  - Post procedural complication [Not Recovered/Not Resolved]
  - Bladder disorder [Not Recovered/Not Resolved]
  - Micturition urgency [Not Recovered/Not Resolved]

NARRATIVE: CASE EVENT DATE: 20150101
